FAERS Safety Report 7319693-4 (Version None)
Quarter: 2011Q1

REPORT INFORMATION
  Report Type: 
  Country: None (occurrence: None)
  Receive Date: 20110228
  Receipt Date: 20100803
  Transmission Date: 20110831
  Serious: No
  Sender: FDA-Public Use
  Company Number: A0873750A

PATIENT
  Age: 46 Year
  Sex: Female

DRUGS (3)
  1. FEXOFENADINE [Concomitant]
  2. LAMICTAL [Suspect]
     Indication: DEPRESSION
     Route: 048
     Dates: start: 20100701, end: 20100801
  3. NASACORT AQ [Concomitant]

REACTIONS (2)
  - RASH [None]
  - PRURITUS [None]
